FAERS Safety Report 23145319 (Version 1)
Quarter: 2023Q4

REPORT INFORMATION
  Report Type: Spontaneous
  Country: ES (occurrence: None)
  Receive Date: 20231103
  Receipt Date: 20231103
  Transmission Date: 20240110
  Serious: Yes (Other)
  Sender: FDA-Public Use
  Company Number: 2023A250644

PATIENT
  Age: 55 Year
  Sex: Female
  Weight: 68 kg

DRUGS (3)
  1. ACLIDINIUM BROMIDE [Suspect]
     Active Substance: ACLIDINIUM BROMIDE
     Indication: Sleep apnoea syndrome
     Dosage: 2 INHALATIONS A DAY
     Dates: start: 20230628
  2. LORAZEPAM [Suspect]
     Active Substance: LORAZEPAM
     Dates: start: 202303
  3. CYTISINICLINE [Suspect]
     Active Substance: CYTISINICLINE
     Dates: start: 20230711

REACTIONS (2)
  - Amnesia [Not Recovered/Not Resolved]
  - Off label use [Unknown]

NARRATIVE: CASE EVENT DATE: 20230628
